FAERS Safety Report 4686209-0 (Version None)
Quarter: 2005Q2

REPORT INFORMATION
  Report Type: 
  Country: None (occurrence: None)
  Receive Date: 20050607
  Receipt Date: 20050523
  Transmission Date: 20051028
  Serious: Yes (Hospitalization, Other)
  Sender: FDA-Public Use
  Company Number: 2005078621

PATIENT
  Age: 68 Year
  Sex: Female
  Weight: 63.5036 kg

DRUGS (4)
  1. CELEBREX [Suspect]
     Indication: PAIN
     Dosage: 1 IN 1 D ORAL
     Dates: end: 20040101
  2. BEXTRA [Suspect]
     Indication: PAIN
     Dosage: ORAL
     Route: 048
  3. ARTHROTEC [Suspect]
     Indication: PAIN
     Dates: start: 20040601
  4. ALL OTHER THERAPEUTIC PRODUCTS [Concomitant]

REACTIONS (4)
  - CARTILAGE INJURY [None]
  - DRUG INEFFECTIVE [None]
  - PAIN [None]
  - STOMACH DISCOMFORT [None]
